FAERS Safety Report 4753602-7 (Version None)
Quarter: 2005Q3

REPORT INFORMATION
  Report Type: 
  Country: None (occurrence: None)
  Receive Date: 20050826
  Receipt Date: 20040907
  Transmission Date: 20060218
  Serious: No
  Sender: FDA-Public Use
  Company Number: US-GLAXOSMITHKLINE-A0524733A

PATIENT
  Age: 70 Year
  Sex: Male

DRUGS (2)
  1. BECONASE [Suspect]
     Indication: RHINITIS
     Route: 045
     Dates: start: 20040903
  2. LEVOXYL [Concomitant]

REACTIONS (3)
  - CHEST PAIN [None]
  - DYSGEUSIA [None]
  - DYSPNOEA [None]
